FAERS Safety Report 24997093 (Version 1)
Quarter: 2025Q1

REPORT INFORMATION
  Report Type: Other
  Country: US (occurrence: US)
  Receive Date: 20250221
  Receipt Date: 20250221
  Transmission Date: 20250409
  Serious: Yes (Hospitalization, Other)
  Sender: GUARDIAN DRUG COMPANY
  Company Number: US-Guardian Drug Company-2171560

PATIENT
  Age: 58 Year
  Sex: Male

DRUGS (1)
  1. CHILDRENS IBUPROFEN [Suspect]
     Active Substance: IBUPROFEN
     Indication: Osteoarthritis

REACTIONS (2)
  - Duodenal ulcer [Recovered/Resolved]
  - Product use in unapproved indication [Unknown]
